FAERS Safety Report 8970862 (Version 1)
Quarter: 2012Q4

REPORT INFORMATION
  Report Type: 
  Country: US (occurrence: US)
  Receive Date: 20121218
  Receipt Date: 20121218
  Transmission Date: 20130627
  Serious: Yes (Other)
  Sender: FDA-Public Use
  Company Number: US-ELI_LILLY_AND_COMPANY-US201212003932

PATIENT
  Sex: Male

DRUGS (3)
  1. HUMULIN REGULAR [Suspect]
     Indication: DIABETES MELLITUS
     Dosage: UNK, other
  2. LANTUS [Concomitant]
     Indication: DIABETES MELLITUS
     Dosage: 30 u, bid
     Route: 058
     Dates: start: 2012
  3. SIROLIMUS [Concomitant]
     Dosage: UNK, unknown

REACTIONS (10)
  - Pulmonary mass [Unknown]
  - Gallbladder operation [Unknown]
  - Renal mass [Unknown]
  - Renal cell carcinoma [Unknown]
  - Pancreatitis [Unknown]
  - Hypoglycaemic coma [Recovered/Resolved]
  - Rotator cuff repair [Unknown]
  - Herpes zoster [Recovered/Resolved]
  - Blood glucose increased [Recovered/Resolved]
  - Post herpetic neuralgia [Unknown]
